FAERS Safety Report 4695604-5 (Version None)
Quarter: 2005Q2

REPORT INFORMATION
  Report Type: 
  Country: None (occurrence: None)
  Receive Date: 20050608
  Receipt Date: 20050324
  Transmission Date: 20051028
  Serious: No
  Sender: FDA-Public Use
  Company Number: A03200500827

PATIENT
  Age: 59 Year
  Sex: Male
  Weight: 91.6266 kg

DRUGS (4)
  1. ELOXATIN [Suspect]
     Indication: COLORECTAL CANCER
     Dosage: INTRAVENOS NOS
     Route: 042
     Dates: start: 20050301, end: 20050301
  2. ELOXATIN [Suspect]
     Indication: METASTASES TO LIVER
     Dosage: INTRAVENOS NOS
     Route: 042
     Dates: start: 20050301, end: 20050301
  3. FLUOROURACIL [Concomitant]
  4. LEUCOVORIN [Concomitant]

REACTIONS (1)
  - VISUAL FIELD DEFECT [None]
